FAERS Safety Report 6555629-1 (Version None)
Quarter: 2010Q1

REPORT INFORMATION
  Report Type: 
  Country: None (occurrence: None)
  Receive Date: 20100128
  Receipt Date: 20100120
  Transmission Date: 20100710
  Serious: Yes (Other)
  Sender: FDA-Public Use
  Company Number: US-KINGPHARMUSA00001-K201000087

PATIENT
  Age: 35 Year
  Sex: Male

DRUGS (9)
  1. EMBEDA [Suspect]
     Indication: BACK PAIN
     Dosage: 100 MG, BID
     Route: 048
  2. EMBEDA [Suspect]
     Indication: PAIN IN EXTREMITY
  3. EMBEDA [Suspect]
     Indication: LUMBAR RADICULOPATHY
  4. DIAZEPAM [Concomitant]
     Indication: PANIC DISORDER
     Dosage: 10 MG, TID
     Route: 048
  5. WELLBUTRIN [Concomitant]
     Indication: DEPRESSION
     Dosage: 300 MG, QD
     Route: 048
  6. MIRTAZAPINE [Concomitant]
     Indication: DEPRESSION
     Dosage: 45 MG, QHS
     Route: 048
  7. SEROQUEL [Concomitant]
     Indication: SLEEP DISORDER
     Dosage: 200 MG, QHS
     Route: 048
  8. NORTRIPTYLINE [Concomitant]
     Indication: PANIC DISORDER
     Dosage: 200 MG, BID
     Route: 048
  9. NORTRIPTYLINE [Concomitant]
     Indication: MYALGIA

REACTIONS (5)
  - FAECAL INCONTINENCE [None]
  - FEELING ABNORMAL [None]
  - HALLUCINATION, AUDITORY [None]
  - HALLUCINATION, VISUAL [None]
  - LOSS OF CONSCIOUSNESS [None]
